FAERS Safety Report 4749975-1 (Version None)
Quarter: 2005Q3

REPORT INFORMATION
  Report Type: 
  Country: None (occurrence: None)
  Receive Date: 20050822
  Receipt Date: 20050314
  Transmission Date: 20060218
  Serious: Yes (Hospitalization)
  Sender: FDA-Public Use
  Company Number: US-MERCK-0503USA02930

PATIENT
  Age: 64 Year
  Sex: Male
  Weight: 94 kg

DRUGS (7)
  1. VIOXX [Suspect]
     Indication: ARTHRITIS
     Route: 048
     Dates: start: 20010705, end: 20041102
  2. ASPIRIN [Concomitant]
     Route: 065
  3. NITROSTAT [Concomitant]
     Route: 065
  4. LIPITOR [Concomitant]
     Route: 065
  5. ALTACE [Concomitant]
     Route: 065
  6. PLAVIX [Concomitant]
     Route: 065
  7. PRILOSEC [Concomitant]
     Route: 065

REACTIONS (25)
  - ABDOMINAL PAIN UPPER [None]
  - ANXIETY [None]
  - ATRIOVENTRICULAR BLOCK FIRST DEGREE [None]
  - BENIGN PROSTATIC HYPERPLASIA [None]
  - BLOOD CHOLESTEROL INCREASED [None]
  - CONSTIPATION [None]
  - CONTUSION [None]
  - CORNEAL ABRASION [None]
  - CORONARY ARTERY DISEASE [None]
  - DIARRHOEA [None]
  - DYSPEPSIA [None]
  - EMOTIONAL DISTRESS [None]
  - EPIDIDYMAL ENLARGEMENT [None]
  - ESSENTIAL HYPERTENSION [None]
  - GANGLION [None]
  - GASTRITIS [None]
  - GASTROOESOPHAGEAL REFLUX DISEASE [None]
  - GOUT [None]
  - HAEMATOMA [None]
  - HYPERTENSION [None]
  - MUSCLE SPASMS [None]
  - MYOCARDIAL INFARCTION [None]
  - OSTEOARTHRITIS [None]
  - RECTAL POLYP [None]
  - ROTATOR CUFF SYNDROME [None]
